FAERS Safety Report 8889127 (Version 1)
Quarter: 2012Q4

REPORT INFORMATION
  Report Type: 
  Country: US (occurrence: US)
  Receive Date: 20121106
  Receipt Date: 20121106
  Transmission Date: 20130627
  Serious: No
  Sender: FDA-Public Use
  Company Number: US-009507513-1211USA000827

PATIENT
  Age: 34 Year
  Sex: Female
  Weight: 136.5 kg

DRUGS (1)
  1. SINGULAIR [Suspect]
     Dosage: 2 DF, UNK
     Dates: start: 201205

REACTIONS (2)
  - Abdominal discomfort [Unknown]
  - Dizziness [Unknown]
